FAERS Safety Report 22250752 (Version 2)
Quarter: 2023Q2

REPORT INFORMATION
  Report Type: Report from Study
  Country: CO (occurrence: CO)
  Receive Date: 20230425
  Receipt Date: 20230612
  Transmission Date: 20230722
  Serious: Yes (Hospitalization, Other)
  Sender: FDA-Public Use
  Company Number: CO-009507513-2107COL003938

PATIENT
  Age: 52 Year
  Sex: Female
  Weight: 40 kg

DRUGS (11)
  1. PEMBROLIZUMAB [Suspect]
     Active Substance: PEMBROLIZUMAB
     Indication: Renal cancer
     Dosage: 200 MILLIGRAM, Q3W
     Route: 042
     Dates: start: 20210513, end: 20210513
  2. PEMBROLIZUMAB [Suspect]
     Active Substance: PEMBROLIZUMAB
     Dosage: 200 MILLIGRAM, Q3W
     Route: 042
     Dates: start: 20210708, end: 20210708
  3. PEMBROLIZUMAB [Suspect]
     Active Substance: PEMBROLIZUMAB
     Dosage: 200 MILLIGRAM Q3W
     Route: 042
     Dates: start: 20211202, end: 20211202
  4. PEMBROLIZUMAB [Suspect]
     Active Substance: PEMBROLIZUMAB
     Dosage: 200 MILLIGRAM Q3W
     Route: 042
     Dates: start: 20211223, end: 20211223
  5. PEMBROLIZUMAB [Suspect]
     Active Substance: PEMBROLIZUMAB
     Dosage: 200 MILLIGRAM, EVERY 28 DAYS
     Route: 042
     Dates: start: 20220127, end: 20220127
  6. PEMBROLIZUMAB [Suspect]
     Active Substance: PEMBROLIZUMAB
     Dosage: 200 MILLIGRAM, EVERY 28 DAYS||EVERY 4 WEEKS
     Route: 042
     Dates: start: 20220602, end: 20220602
  7. PEMBROLIZUMAB [Suspect]
     Active Substance: PEMBROLIZUMAB
     Dosage: 200 MILLIGRAM, EVERY 28 DAYS
     Route: 042
     Dates: start: 20221208
  8. PEMBROLIZUMAB [Suspect]
     Active Substance: PEMBROLIZUMAB
     Dosage: 200 MILLIGRAM Q3||Q3W
     Route: 042
     Dates: start: 20230329, end: 20230329
  9. PEMBROLIZUMAB [Suspect]
     Active Substance: PEMBROLIZUMAB
     Dosage: 200 MILLIGRAM Q3||Q3W
     Route: 042
     Dates: start: 20230510, end: 20230510
  10. AXITINIB [Suspect]
     Active Substance: AXITINIB
     Indication: Renal cancer
     Dosage: 5 MILLIGRAM, Q12H
     Route: 048
     Dates: start: 20210513
  11. AXITINIB [Suspect]
     Active Substance: AXITINIB
     Dosage: 5 MG, DAILY, ORALLY
     Route: 048
     Dates: start: 202208

REACTIONS (22)
  - Hepatic failure [Unknown]
  - Radiotherapy to kidney [Unknown]
  - Acute myocardial infarction [Recovering/Resolving]
  - Gait disturbance [Unknown]
  - Malignant neoplasm progression [Unknown]
  - Nausea [Recovering/Resolving]
  - Vomiting [Recovering/Resolving]
  - Feeling cold [Recovering/Resolving]
  - Mood altered [Unknown]
  - Sacral pain [Recovering/Resolving]
  - Sleep disorder due to a general medical condition [Unknown]
  - Nasopharyngitis [Recovering/Resolving]
  - Malaise [Recovering/Resolving]
  - Pain [Recovering/Resolving]
  - Blood pressure increased [Recovered/Resolved]
  - Headache [Recovering/Resolving]
  - Diarrhoea [Recovered/Resolved]
  - Inappropriate schedule of product administration [Unknown]
  - Inappropriate schedule of product administration [Unknown]
  - Inappropriate schedule of product administration [Unknown]
  - Inappropriate schedule of product administration [Unknown]
  - Inappropriate schedule of product administration [Unknown]

NARRATIVE: CASE EVENT DATE: 20210520
